FAERS Safety Report 8560589 (Version 3)
Quarter: 2013Q1

REPORT INFORMATION
  Report Type: Report from Study
  Country: US (occurrence: US)
  Receive Date: 20120514
  Receipt Date: 20130218
  Transmission Date: 20140127
  Serious: Yes (Hospitalization)
  Sender: FDA-Public Use
  Company Number: US-ROCHE-1039549

PATIENT
  Age: 74 Year
  Sex: Male
  Weight: 62.65 kg

DRUGS (2)
  1. RITUXIMAB [Suspect]
     Indication: CHRONIC LYMPHOCYTIC LEUKAEMIA
     Route: 042
     Dates: start: 20101013, end: 20110517
  2. RITUXIMAB [Suspect]
     Route: 042
     Dates: start: 20110223, end: 20110517

REACTIONS (2)
  - Hypogammaglobulinaemia [Recovered/Resolved]
  - Pneumonia [Unknown]
